FAERS Safety Report 7942348-X (Version None)
Quarter: 2011Q4

REPORT INFORMATION
  Report Type: 
  Country: None (occurrence: None)
  Receive Date: 20111128
  Receipt Date: 20111116
  Transmission Date: 20120403
  Serious: Yes (Other)
  Sender: FDA-Public Use
  Company Number: SE-GLAXOSMITHKLINE-A0953085A

PATIENT
  Sex: Male

DRUGS (3)
  1. NICORETTE [Suspect]
     Indication: SMOKING CESSATION THERAPY
     Route: 002
  2. NICOTINE [Suspect]
  3. NICORETTE [Suspect]
     Indication: SMOKING CESSATION THERAPY
     Route: 002

REACTIONS (6)
  - METASTATIC RENAL CELL CARCINOMA [None]
  - EPILEPSY [None]
  - RENAL CANCER [None]
  - INTENTIONAL DRUG MISUSE [None]
  - BRAIN OEDEMA [None]
  - METASTASES TO CENTRAL NERVOUS SYSTEM [None]
